FAERS Safety Report 5253649-0 (Version None)
Quarter: 2007Q1

REPORT INFORMATION
  Report Type: 
  Country: None (occurrence: None)
  Receive Date: 20070301
  Receipt Date: 20070220
  Transmission Date: 20070707
  Serious: Yes (Other)
  Sender: FDA-Public Use
  Company Number: US-PFIZER INC-2007013788

PATIENT
  Age: 17 Year
  Sex: Male

DRUGS (1)
  1. ZOLOFT [Suspect]

REACTIONS (4)
  - CEREBRAL PALSY [None]
  - DRUG INEFFECTIVE [None]
  - PANIC ATTACK [None]
  - SOCIAL PHOBIA [None]
